FAERS Safety Report 18962713 (Version 1)
Quarter: 2021Q1

REPORT INFORMATION
  Report Type: Spontaneous
  Country: US (occurrence: US)
  Receive Date: 20210302
  Receipt Date: 20210302
  Transmission Date: 20210420
  Serious: No
  Sender: FDA-Public Use
  Company Number: None

PATIENT
  Age: 43 Year
  Sex: Female

DRUGS (1)
  1. AMBRISENTAN 5MG TABLETS 30/BO: 5MG [Suspect]
     Active Substance: AMBRISENTAN
     Indication: PULMONARY HYPERTENSION
     Route: 048
     Dates: start: 20201202

REACTIONS (6)
  - Peripheral swelling [None]
  - Dyspnoea [None]
  - Pulmonary hypertension [None]
  - Pain in extremity [None]
  - Condition aggravated [None]
  - Chest discomfort [None]

NARRATIVE: CASE EVENT DATE: 202102
